FAERS Safety Report 6821696-0 (Version None)
Quarter: 2010Q3

REPORT INFORMATION
  Report Type: 
  Country: None (occurrence: None)
  Receive Date: 20100702
  Receipt Date: 20100621
  Transmission Date: 20110219
  Serious: Yes (Life-Threatening, Other)
  Sender: FDA-Public Use
  Company Number: 2010AL003154

PATIENT
  Age: 45 Year
  Sex: Female

DRUGS (9)
  1. FLUOXETINE [Suspect]
     Indication: SEASONAL AFFECTIVE DISORDER
     Dosage: 1 DF;QD;PO
     Route: 048
     Dates: start: 20000101
  2. FEXOFENADINE [Concomitant]
  3. NAPROXEN [Concomitant]
  4. NAPROXEN [Concomitant]
  5. OMEPRAZOLE [Concomitant]
  6. AMOXICILLIN [Concomitant]
  7. VENTOLIN [Concomitant]
  8. NORDETTE-28 [Concomitant]
  9. ORLISTAT [Concomitant]

REACTIONS (4)
  - DRUG INTERACTION [None]
  - OBESITY [None]
  - SELF-INJURIOUS IDEATION [None]
  - SUICIDAL IDEATION [None]
